FAERS Safety Report 7302337-5 (Version None)
Quarter: 2011Q1

REPORT INFORMATION
  Report Type: 
  Country: None (occurrence: None)
  Receive Date: 20110218
  Receipt Date: 20110207
  Transmission Date: 20110831
  Serious: Yes (Hospitalization)
  Sender: FDA-Public Use
  Company Number: FR-ELI_LILLY_AND_COMPANY-FR201012006188

PATIENT
  Age: 63 Year
  Sex: Male
  Weight: 67 kg

DRUGS (10)
  1. VITAMIN B-12 [Concomitant]
     Indication: VITAMIN SUPPLEMENTATION
     Dosage: UNK, UNKNOWN
     Route: 030
  2. TADENAN [Concomitant]
     Indication: BENIGN PROSTATIC HYPERPLASIA
     Dosage: 100 MG, DAILY (1/D)
     Route: 048
  3. FOLIC ACID [Concomitant]
     Indication: VITAMIN SUPPLEMENTATION
     Dosage: 0.4 MG, DAILY (1/D)
     Route: 048
  4. CARBOPLATIN [Concomitant]
     Indication: NON-SMALL CELL LUNG CANCER
     Dosage: UNK, UNKNOWN
     Route: 042
     Dates: start: 20101215, end: 20101215
  5. CO-RENITEC [Concomitant]
     Indication: HYPERTENSION
     Dosage: 0.5 TABLET, DAILY (1/D)
     Route: 048
  6. MOPRAL [Concomitant]
     Indication: PROPHYLAXIS
     Dosage: UNK, UNKNOWN
     Route: 065
  7. ALIMTA [Suspect]
     Indication: LARGE CELL CARCINOMA OF THE RESPIRATORY TRACT STAGE UNSPECIFIED
     Dosage: 500 MG/M2/ 3 WEEKS, OR 890 MG/INFUSION
     Route: 042
     Dates: start: 20101215, end: 20101215
  8. STEROID ANTIBACTERIALS [Concomitant]
     Indication: PROPHYLAXIS
     Dosage: UNK, UNKNOWN
     Route: 065
  9. VITAMINS NOS [Concomitant]
     Indication: VITAMIN SUPPLEMENTATION
     Dosage: UNK, UNKNOWN
     Route: 065
  10. TEMESTA [Concomitant]
     Indication: INSOMNIA
     Dosage: 2.5 MG, DAILY (1/D)
     Route: 048

REACTIONS (11)
  - MUCOSAL INFLAMMATION [None]
  - OLIGURIA [None]
  - HAEMATOTOXICITY [None]
  - PANCYTOPENIA [None]
  - ILEUS PARALYTIC [None]
  - OEDEMA PERIPHERAL [None]
  - PENILE ULCERATION [None]
  - CYTOLYTIC HEPATITIS [None]
  - TOXIC SKIN ERUPTION [None]
  - DEHYDRATION [None]
  - NEPHROPATHY TOXIC [None]
